FAERS Safety Report 11118140 (Version 1)
Quarter: 2015Q2

REPORT INFORMATION
  Report Type: Spontaneous
  Country: CH (occurrence: None)
  Receive Date: 20150514
  Receipt Date: 20150514
  Transmission Date: 20150821
  Serious: Yes (Hospitalization, Disabling)
  Sender: FDA-Public Use
  Company Number: FK201502194

PATIENT
  Age: 88 Year
  Sex: Female

DRUGS (1)
  1. CEFEPIME [Suspect]
     Active Substance: CEFEPIME\CEFEPIME HYDROCHLORIDE
     Indication: DEVICE RELATED INFECTION

REACTIONS (6)
  - Myoclonus [None]
  - Aphasia [None]
  - Coma scale abnormal [None]
  - Delirium [None]
  - Toxicity to various agents [None]
  - Haemodialysis [None]
